FAERS Safety Report 14109399 (Version 1)
Quarter: 2017Q4

REPORT INFORMATION
  Report Type: Spontaneous
  Country: FR (occurrence: FR)
  Receive Date: 20171019
  Receipt Date: 20171019
  Transmission Date: 20180321
  Serious: Yes (Other)
  Sender: FDA-Public Use
  Company Number: FR-MERCK KGAA-2030802

PATIENT
  Age: 49 Year
  Sex: Female

DRUGS (1)
  1. NOVOTHYROX [Suspect]
     Active Substance: LEVOTHYROXINE SODIUM
     Indication: AUTOIMMUNE THYROIDITIS
     Route: 048
     Dates: start: 20170415

REACTIONS (7)
  - Vertigo [Not Recovered/Not Resolved]
  - Insomnia [Not Recovered/Not Resolved]
  - Arrhythmia [Not Recovered/Not Resolved]
  - Depression [Not Recovered/Not Resolved]
  - Gastrointestinal disorder [Not Recovered/Not Resolved]
  - Blood thyroid stimulating hormone increased [Not Recovered/Not Resolved]
  - Malaise [None]

NARRATIVE: CASE EVENT DATE: 20170508
